FAERS Safety Report 4380120-0 (Version None)
Quarter: 2004Q2

REPORT INFORMATION
  Report Type: 
  Country: None (occurrence: None)
  Receive Date: 20040616
  Receipt Date: 20040615
  Transmission Date: 20050107
  Serious: Yes (Hospitalization)
  Sender: FDA-Public Use
  Company Number: 04-06-0854

PATIENT
  Age: 31 Year
  Sex: Male

DRUGS (1)
  1. CLOZAPINE [Suspect]
     Indication: SCHIZOPHRENIA
     Dosage: 300-400MG QD ORAL
     Route: 048
     Dates: start: 19980101, end: 20040501

REACTIONS (1)
  - LYMPHOMA [None]
